FAERS Safety Report 6921541-9 (Version None)
Quarter: 2010Q3

REPORT INFORMATION
  Report Type: 
  Country: None (occurrence: None)
  Receive Date: 20100812
  Receipt Date: 20100810
  Transmission Date: 20110219
  Serious: Yes (Death)
  Sender: FDA-Public Use
  Company Number: PHHY2010US52922

PATIENT
  Sex: Male
  Weight: 68.94 kg

DRUGS (1)
  1. EXJADE [Suspect]
     Indication: NEOPLASM
     Dosage: 2000 MG/DAILY
     Route: 048
     Dates: start: 20071126

REACTIONS (1)
  - DEATH [None]
